FAERS Safety Report 25246777 (Version 1)
Quarter: 2025Q2

REPORT INFORMATION
  Report Type: Spontaneous
  Country: CA (occurrence: CA)
  Receive Date: 20250428
  Receipt Date: 20250428
  Transmission Date: 20250717
  Serious: Yes (Death, Other)
  Sender: PFIZER
  Company Number: CA-PFIZER INC-2019334642

PATIENT
  Age: 72 Year
  Sex: Male

DRUGS (8)
  1. XELJANZ [Suspect]
     Active Substance: TOFACITINIB CITRATE
     Indication: Colitis ulcerative
     Dosage: 10 MG, 2X/DAY
     Route: 048
     Dates: start: 201907, end: 201907
  2. XELJANZ [Suspect]
     Active Substance: TOFACITINIB CITRATE
     Dosage: 10 MG, 2X/DAY
     Route: 048
     Dates: start: 20190729, end: 201908
  3. XELJANZ [Suspect]
     Active Substance: TOFACITINIB CITRATE
     Dosage: 1/2 10 MG TABLET/DAY
     Route: 048
     Dates: start: 201909, end: 2019
  4. XELJANZ [Suspect]
     Active Substance: TOFACITINIB CITRATE
     Dosage: 1/2 10MG TABLET BD (AM AND PM)
     Route: 048
     Dates: start: 2019
  5. SALOFALK [Concomitant]
     Dosage: UNK, 2X/DAY
     Dates: end: 2019
  6. SALOFALK [Concomitant]
     Dosage: UNK, 1X/DAY
     Dates: start: 2019
  7. MESALAMINE [Concomitant]
     Active Substance: MESALAMINE
  8. SHINGRIX [Concomitant]
     Active Substance: RECOMBINANT VARICELLA ZOSTER VIRUS (VZV) GLYCOPROTEIN E
     Indication: Immunisation
     Dates: start: 20191125, end: 20191125

REACTIONS (6)
  - Death [Fatal]
  - Abdominal pain upper [Unknown]
  - Flatulence [Unknown]
  - Dyspepsia [Recovered/Resolved]
  - Rash [Recovered/Resolved]
  - Muscle spasms [Unknown]

NARRATIVE: CASE EVENT DATE: 20190101
